FAERS Safety Report 8822670 (Version 1)
Quarter: 2012Q4

REPORT INFORMATION
  Report Type: 
  Country: BR (occurrence: BR)
  Receive Date: 20121003
  Receipt Date: 20121003
  Transmission Date: 20130627
  Serious: Yes (Other)
  Sender: FDA-Public Use
  Company Number: BR-BRISTOL-MYERS SQUIBB COMPANY-16998239

PATIENT
  Age: 66 Year
  Sex: Female

DRUGS (1)
  1. APROZIDE [Suspect]
     Indication: HYPERTENSION
     Dosage: 1DF:150/12.5 mg tabs
1 tab in morn and 2 when needed.
     Route: 048

REACTIONS (1)
  - Lymphoma [Unknown]
